FAERS Safety Report 9784787 (Version 4)
Quarter: 2014Q2

REPORT INFORMATION
  Report Type: Spontaneous
  Country: BR (occurrence: BR)
  Receive Date: 20131227
  Receipt Date: 20140422
  Transmission Date: 20141212
  Serious: Yes (Life-Threatening, Hospitalization, Other)
  Sender: FDA-Public Use
  Company Number: BR-ROCHE-1310157

PATIENT
  Age: 74 Year
  Sex: Female
  Weight: 103 kg

DRUGS (1)
  1. XELODA [Suspect]
     Indication: RECTAL NEOPLASM
     Route: 048
     Dates: start: 20131022, end: 20131118

REACTIONS (7)
  - Diarrhoea [Recovered/Resolved]
  - Palmar-plantar erythrodysaesthesia syndrome [Recovered/Resolved]
  - Pulmonary embolism [Recovered/Resolved]
  - Infection [Recovered/Resolved]
  - Subileus [Recovered/Resolved]
  - Pancytopenia [Unknown]
  - White blood cell count decreased [Recovered/Resolved]
